FAERS Safety Report 20199036 (Version 1)
Quarter: 2021Q4

REPORT INFORMATION
  Report Type: Report from Study
  Country: US (occurrence: US)
  Receive Date: 20211217
  Receipt Date: 20211217
  Transmission Date: 20220303
  Serious: Yes (Other)
  Sender: FDA-Public Use
  Company Number: US-JNJFOC-20211220760

PATIENT
  Age: 6 Decade
  Sex: Female

DRUGS (5)
  1. SPRAVATO [Suspect]
     Active Substance: ESKETAMINE
     Indication: Depression
     Dosage: TOTAL 13 DOSES
     Dates: start: 20200217, end: 20200622
  2. SPRAVATO [Suspect]
     Active Substance: ESKETAMINE
     Dosage: TOTAL 14 DOSES
     Dates: start: 20200625, end: 20210721
  3. SPRAVATO [Suspect]
     Active Substance: ESKETAMINE
     Dosage: TOTAL 2 DOSES
     Dates: start: 20210726, end: 20210728
  4. SPRAVATO [Suspect]
     Active Substance: ESKETAMINE
     Dosage: TOTAL OF 10 DOSES
     Dates: start: 20210804, end: 20210927
  5. SPRAVATO [Suspect]
     Active Substance: ESKETAMINE
     Dosage: RECENT DOSE
     Dates: start: 20210929, end: 20210929

REACTIONS (1)
  - Gastric bypass [Unknown]
